FAERS Safety Report 8051225-8 (Version None)
Quarter: 2012Q1

REPORT INFORMATION
  Report Type: 
  Country: None (occurrence: None)
  Receive Date: 20120117
  Receipt Date: 20120106
  Transmission Date: 20120608
  Serious: Yes (Hospitalization)
  Sender: FDA-Public Use
  Company Number: US-ASTRAZENECA-2011SE73745

PATIENT
  Age: 84 Year
  Sex: Male

DRUGS (3)
  1. TOPROL-XL [Suspect]
     Route: 048
  2. COUMADIN [Suspect]
  3. CRESTOR [Suspect]
     Route: 048

REACTIONS (7)
  - BACK PAIN [None]
  - BLOOD POTASSIUM DECREASED [None]
  - ARTHRITIS [None]
  - FALL [None]
  - HEADACHE [None]
  - COAGULATION TIME PROLONGED [None]
  - AREFLEXIA [None]
